FAERS Safety Report 20084383 (Version 1)
Quarter: 2021Q4

REPORT INFORMATION
  Report Type: Spontaneous
  Country: US (occurrence: US)
  Receive Date: 20211118
  Receipt Date: 20211118
  Transmission Date: 20220303
  Serious: No
  Sender: FDA-Public Use
  Company Number: US-ELI_LILLY_AND_COMPANY-US202110011088

PATIENT
  Sex: Male

DRUGS (6)
  1. GLUCAGON [Suspect]
     Active Substance: GLUCAGON
     Indication: Product used for unknown indication
     Dosage: UNK, SINGLE
     Route: 065
     Dates: start: 20210908
  2. GLUCAGON [Suspect]
     Active Substance: GLUCAGON
     Indication: Product used for unknown indication
     Dosage: UNK, SINGLE
     Route: 065
     Dates: start: 20210908
  3. GLUCAGON [Suspect]
     Active Substance: GLUCAGON
     Indication: Product used for unknown indication
     Dosage: UNK, SINGLE
     Route: 065
     Dates: start: 20210908
  4. GLUCAGON [Suspect]
     Active Substance: GLUCAGON
     Dosage: UNK UNK, UNKNOWN
     Route: 065
  5. GLUCAGON [Suspect]
     Active Substance: GLUCAGON
     Dosage: UNK UNK, UNKNOWN
     Route: 065
  6. GLUCAGON [Suspect]
     Active Substance: GLUCAGON
     Dosage: UNK UNK, UNKNOWN
     Route: 065

REACTIONS (2)
  - Therapeutic response delayed [Recovered/Resolved]
  - Intercepted product dispensing error [Unknown]
